FAERS Safety Report 4939231-0 (Version None)
Quarter: 2006Q1

REPORT INFORMATION
  Report Type: 
  Country: None (occurrence: None)
  Receive Date: 20060306
  Receipt Date: 20060219
  Transmission Date: 20060701
  Serious: Yes (Other)
  Sender: FDA-Public Use
  Company Number: BR200603000524

PATIENT
  Age: 40 Year
  Sex: Male

DRUGS (3)
  1. CIALIS [Suspect]
     Dosage: 20 MG, OTHER, ORAL
     Route: 048
  2. ALCOHOL (ETHANOL) [Concomitant]
  3. COCAINE (COCAINE) [Concomitant]

REACTIONS (2)
  - CHORIORETINOPATHY [None]
  - DETACHMENT OF RETINAL PIGMENT EPITHELIUM [None]
